FAERS Safety Report 18778931 (Version 3)
Quarter: 2021Q1

REPORT INFORMATION
  Report Type: Spontaneous
  Country: US (occurrence: US)
  Receive Date: 20210124
  Receipt Date: 20210216
  Transmission Date: 20210419
  Serious: Yes (Hospitalization)
  Sender: FDA-Public Use
  Company Number: US-ROCHE-2754377

PATIENT
  Age: 40 Year
  Sex: Male
  Weight: 68.1 kg

DRUGS (2)
  1. MODERNA COVID?19 VACCINE [Suspect]
     Active Substance: CX-024414
     Indication: PRODUCT USED FOR UNKNOWN INDICATION
     Route: 065
     Dates: start: 20210106
  2. EVRYSDI [Suspect]
     Active Substance: RISDIPLAM
     Indication: SPINAL MUSCULAR ATROPHY
     Route: 048
     Dates: start: 20201211

REACTIONS (2)
  - Cellulitis [Not Recovered/Not Resolved]
  - Product dose omission issue [Unknown]

NARRATIVE: CASE EVENT DATE: 20210108
